FAERS Safety Report 5584838-3 (Version None)
Quarter: 2008Q1

REPORT INFORMATION
  Report Type: 
  Country: None (occurrence: None)
  Receive Date: 20080104
  Receipt Date: 20071211
  Transmission Date: 20080703
  Serious: Yes (Other)
  Sender: FDA-Public Use
  Company Number: MK-6033876

PATIENT
  Age: 38 Year
  Sex: Female

DRUGS (7)
  1. AMNESTEEM [Suspect]
     Indication: DRUG USE FOR UNKNOWN INDICATION
     Dosage: 40 MG; TWICE A DAY; ORAL; 40 MGL DAILY; ORAL
     Route: 048
     Dates: start: 20061129, end: 20070330
  2. AMNESTEEM [Suspect]
     Indication: DRUG USE FOR UNKNOWN INDICATION
     Dosage: 40 MG; TWICE A DAY; ORAL; 40 MGL DAILY; ORAL
     Route: 048
     Dates: start: 20061129, end: 20070330
  3. ZOFRAN [Concomitant]
  4. PROZAC /00724401/ [Concomitant]
  5. LAMICTAL [Concomitant]
  6. PHENERGAN /00033001/ [Concomitant]
  7. REGLAN /00041901/ [Concomitant]

REACTIONS (2)
  - DRUG EXPOSURE BEFORE PREGNANCY [None]
  - PREGNANCY [None]
